FAERS Safety Report 9335737 (Version 2)
Quarter: 2013Q2

REPORT INFORMATION
  Report Type: Spontaneous
  Country: JP (occurrence: JP)
  Receive Date: 20130607
  Receipt Date: 20130622
  Transmission Date: 20140414
  Serious: Yes (Hospitalization, Other)
  Sender: FDA-Public Use
  Company Number: JP-009507513-1305JPN017667

PATIENT
  Age: 62 Year
  Sex: Female
  Weight: 57 kg

DRUGS (14)
  1. PEGINTRON [Suspect]
     Indication: CHRONIC HEPATITIS C
     Dosage: 1.5 MICROGRAM PER KILOGRAM, QW
     Route: 058
     Dates: start: 20130219, end: 20130424
  2. REBETOL [Suspect]
     Indication: CHRONIC HEPATITIS C
     Dosage: 200 MG, QOD
     Route: 048
     Dates: start: 20130402, end: 20130428
  3. REBETOL [Suspect]
     Dosage: 600 MG, QD
     Route: 048
     Dates: start: 20130219, end: 20130311
  4. REBETOL [Suspect]
     Dosage: 400 MG, QD
     Route: 048
     Dates: start: 20130312, end: 20130318
  5. REBETOL [Suspect]
     Dosage: 200 MG, QD
     Route: 048
     Dates: start: 20130319, end: 20130401
  6. TELAVIC [Suspect]
     Indication: CHRONIC HEPATITIS C
     Dosage: 1500MG, QD
     Route: 048
     Dates: start: 20130219, end: 20130425
  7. NU-LOTAN [Concomitant]
     Dosage: 50 MG, QD
     Route: 048
  8. SENNOSIDES [Concomitant]
     Indication: CONSTIPATION
     Dosage: 12 MG/DAY, PRN
     Route: 048
  9. LENDORMIN D [Concomitant]
     Indication: INSOMNIA
     Dosage: 0.25 MG/DAY, PRN
     Route: 048
     Dates: start: 20130223
  10. NEXIUM [Concomitant]
     Indication: PROPHYLAXIS
     Dosage: 20 MG, QD
     Route: 048
     Dates: start: 20130402
  11. BFLUID [Concomitant]
     Indication: DEHYDRATION
     Dosage: 1000ML, QD
     Route: 042
     Dates: start: 20130422, end: 20130430
  12. BFLUID [Concomitant]
     Indication: NUTRITIONAL CONDITION ABNORMAL
  13. DENOSINE [Concomitant]
     Indication: CYTOMEGALOVIRUS INFECTION
     Dosage: 500 MG, QD
     Route: 042
     Dates: start: 20130502, end: 20130507
  14. FUNGIZONE [Concomitant]
     Indication: PROPHYLAXIS
     Dosage: UNK
     Route: 049
     Dates: start: 20130503

REACTIONS (2)
  - Stevens-Johnson syndrome [Unknown]
  - Cytomegalovirus viraemia [Recovered/Resolved]
